FAERS Safety Report 9362901 (Version 1)
Quarter: 2013Q2

REPORT INFORMATION
  Report Type: Spontaneous
  Country: US (occurrence: None)
  Receive Date: 20130621
  Receipt Date: 20130621
  Transmission Date: 20140414
  Serious: Yes (Other)
  Sender: FDA-Public Use
  Company Number: None

PATIENT
  Age: 38 Year
  Sex: Female
  Weight: 99.79 kg

DRUGS (1)
  1. MIRENA [Suspect]

REACTIONS (11)
  - Product counterfeit [None]
  - Device failure [None]
  - Urticaria [None]
  - Swelling face [None]
  - Lip swelling [None]
  - Alopecia [None]
  - Abdominal pain upper [None]
  - Subcutaneous abscess [None]
  - Nephrolithiasis [None]
  - Cholelithiasis [None]
  - Hypoaesthesia [None]
